FAERS Safety Report 18775040 (Version 1)
Quarter: 2021Q1

REPORT INFORMATION
  Report Type: Spontaneous
  Country: US (occurrence: US)
  Receive Date: 20210122
  Receipt Date: 20210122
  Transmission Date: 20210419
  Serious: Yes (Other)
  Sender: FDA-Public Use
  Company Number: US-CADILA HEALTHCARE LIMITED-US-ZYDUS-061249

PATIENT

DRUGS (4)
  1. ZIRCONIUM SILICATE [Concomitant]
     Indication: PRODUCT USED FOR UNKNOWN INDICATION
  2. PATIROMER [Suspect]
     Active Substance: PATIROMER
     Indication: HYPERKALAEMIA
     Dosage: 8.4 MILLIGRAM, QD
     Route: 065
  3. LOSARTAN. [Suspect]
     Active Substance: LOSARTAN
     Indication: CHRONIC KIDNEY DISEASE
     Dosage: 100 MILLIGRAM
     Route: 065
  4. PATIROMER [Suspect]
     Active Substance: PATIROMER
     Dosage: 25.2 MILLIGRAM, QD
     Route: 065

REACTIONS (2)
  - Hyperkalaemia [Unknown]
  - Hypercalcaemia [Recovered/Resolved]
